FAERS Safety Report 15745253 (Version 4)
Quarter: 2019Q2

REPORT INFORMATION
  Report Type: Report from Study
  Country: US (occurrence: US)
  Receive Date: 20181220
  Receipt Date: 20190426
  Transmission Date: 20190711
  Serious: Yes (Hospitalization, Other)
  Sender: FDA-Public Use
  Company Number: US-EMD SERONO-9059592

PATIENT
  Age: 65 Year
  Sex: Female

DRUGS (1)
  1. REBIF [Suspect]
     Active Substance: INTERFERON BETA-1A
     Indication: MULTIPLE SCLEROSIS
     Route: 058
     Dates: start: 20171220

REACTIONS (15)
  - Blood pressure increased [Unknown]
  - Euphoric mood [Unknown]
  - Product dose omission [Recovered/Resolved]
  - Haemoglobin decreased [Unknown]
  - Hysterectomy [Unknown]
  - Lung disorder [Unknown]
  - Mobility decreased [Unknown]
  - Memory impairment [Unknown]
  - Bladder disorder [Unknown]
  - Procedural pain [Unknown]
  - Large intestine perforation [Unknown]
  - Postoperative wound complication [Unknown]
  - Ovarian cancer [Unknown]
  - Pulmonary thrombosis [Unknown]
  - Abdominal discomfort [Unknown]

NARRATIVE: CASE EVENT DATE: 201810
